FAERS Safety Report 7441729-0 (Version None)
Quarter: 2011Q2

REPORT INFORMATION
  Report Type: 
  Country: None (occurrence: None)
  Receive Date: 20110428
  Receipt Date: 20110418
  Transmission Date: 20111010
  Serious: Yes (Hospitalization)
  Sender: FDA-Public Use
  Company Number: US-NOVOPROD-326806

PATIENT
  Sex: Male
  Weight: 99.773 kg

DRUGS (6)
  1. LEVEMIR [Suspect]
     Indication: TYPE 2 DIABETES MELLITUS
     Dosage: UNK
     Route: 058
     Dates: start: 20101201
  2. VICTOZA [Suspect]
     Dosage: 0.6 MG, QD
     Dates: start: 20110411, end: 20110416
  3. ALDACTONE [Concomitant]
     Indication: PRODUCT USED FOR UNKNOWN INDICATION
  4. VICTOZA [Suspect]
     Dosage: 1.2 MG, QD
     Dates: start: 20110416
  5. CARVEDILOL [Concomitant]
     Indication: PRODUCT USED FOR UNKNOWN INDICATION
  6. VICTOZA [Suspect]
     Indication: TYPE 2 DIABETES MELLITUS
     Dosage: 0.6 MG, QD
     Route: 058
     Dates: start: 20110101, end: 20110201

REACTIONS (3)
  - GASTRIC ULCER [None]
  - COLONIC POLYP [None]
  - RECTAL HAEMORRHAGE [None]
